FAERS Safety Report 24025727 (Version 2)
Quarter: 2024Q3

REPORT INFORMATION
  Report Type: Report from Study
  Country: RS (occurrence: RS)
  Receive Date: 20240628
  Receipt Date: 20240710
  Transmission Date: 20241017
  Serious: No
  Sender: ROCHE
  Company Number: RS-ROCHE-3189894

PATIENT
  Age: 75 Year
  Sex: Female
  Weight: 70.0 kg

DRUGS (17)
  1. ALECTINIB [Suspect]
     Active Substance: ALECTINIB
     Indication: Lung cancer metastatic
     Route: 048
     Dates: start: 20220309
  2. RAMIPRIL [Concomitant]
     Active Substance: RAMIPRIL
     Indication: Hypertension
     Route: 048
  3. RAMIPRIL [Concomitant]
     Active Substance: RAMIPRIL
     Route: 048
  4. AMLODIPINE BESYLATE [Concomitant]
     Active Substance: AMLODIPINE BESYLATE
     Indication: Hypertension
     Route: 048
  5. ZORKAPTIL [Concomitant]
     Indication: Hypertension
     Route: 048
  6. ZORKAPTIL [Concomitant]
     Route: 048
  7. DIAZEPAM [Concomitant]
     Active Substance: DIAZEPAM
     Indication: Hypertension
     Route: 048
  8. DIAZEPAM [Concomitant]
     Active Substance: DIAZEPAM
     Route: 048
  9. GEMCITABINE [Concomitant]
     Active Substance: GEMCITABINE
     Dates: start: 20220921, end: 20221220
  10. CISPLATIN [Concomitant]
     Active Substance: CISPLATIN
     Dates: start: 20220921, end: 20221220
  11. REFERUM [Concomitant]
     Indication: Anaemia
     Route: 048
     Dates: start: 20220916
  12. FOLAN [FOLIC ACID] [Concomitant]
     Indication: Anaemia
     Route: 048
     Dates: start: 20220916
  13. VITAMIN C [Concomitant]
     Active Substance: ASCORBIC ACID
     Indication: Anaemia
     Route: 048
     Dates: start: 20220916
  14. HERBALS\SILYBUM MARIANUM WHOLE [Concomitant]
     Active Substance: HERBALS\SILYBUM MARIANUM WHOLE
     Route: 048
     Dates: start: 20220715
  15. RASETRON [Concomitant]
     Indication: Nausea
     Route: 048
     Dates: start: 20220928
  16. PANTOPRAZOLE SODIUM [Concomitant]
     Active Substance: PANTOPRAZOLE SODIUM
     Route: 048
     Dates: start: 20221012
  17. BILASTIN [Concomitant]
     Route: 048
     Dates: start: 20221122

REACTIONS (3)
  - Aspartate aminotransferase increased [Recovered/Resolved]
  - Fatigue [Recovering/Resolving]
  - Anaemia [Recovering/Resolving]

NARRATIVE: CASE EVENT DATE: 20220404
